FAERS Safety Report 11893569 (Version 3)
Quarter: 2016Q1

REPORT INFORMATION
  Report Type: Spontaneous
  Country: US (occurrence: US)
  Receive Date: 20160106
  Receipt Date: 20160330
  Transmission Date: 20160526
  Serious: Yes (Death)
  Sender: FDA-Public Use
  Company Number: US-009507513-1601USA000824

PATIENT
  Sex: Female
  Weight: 84.81 kg

DRUGS (2)
  1. KEYTRUDA [Suspect]
     Active Substance: PEMBROLIZUMAB
     Indication: OVARIAN CANCER
  2. KEYTRUDA [Suspect]
     Active Substance: PEMBROLIZUMAB
     Indication: FALLOPIAN TUBE CANCER
     Dosage: 180 MG, EVERY 21 DAYS
     Route: 048

REACTIONS (3)
  - Disease progression [Fatal]
  - Product use issue [Unknown]
  - Incorrect route of drug administration [Unknown]
